FAERS Safety Report 9356224 (Version 3)
Quarter: 2013Q3

REPORT INFORMATION
  Report Type: Spontaneous
  Country: JP (occurrence: JP)
  Receive Date: 20130619
  Receipt Date: 20130716
  Transmission Date: 20140515
  Serious: Yes (Hospitalization)
  Sender: FDA-Public Use
  Company Number: JP-GLAXOSMITHKLINE-B0899731A

PATIENT
  Age: 81 Year
  Sex: Female
  Weight: 46 kg

DRUGS (11)
  1. SODIUM RABEPRAZOLE [Concomitant]
     Dosage: 10MG PER DAY
     Route: 048
  2. TRICHLORMETHIAZIDE [Concomitant]
     Dosage: 2MG PER DAY
     Route: 048
  3. NORVASC [Concomitant]
     Dosage: 5MG PER DAY
     Route: 048
  4. DIOVAN [Concomitant]
     Dosage: 80MG PER DAY
     Route: 048
  5. FLUTAZOLAM [Concomitant]
     Dosage: 4MG PER DAY
     Route: 048
  6. ROHYPNOL [Concomitant]
     Dosage: 1MG PER DAY
     Route: 048
  7. CHINESE MEDICINE [Concomitant]
     Dosage: 2.5G PER DAY
     Route: 048
  8. UNKNOWN DRUG [Concomitant]
     Route: 048
  9. VALTREX [Suspect]
     Indication: GENITAL HERPES
     Dosage: 500MG TWICE PER DAY
     Route: 048
     Dates: start: 20130513, end: 20130610
  10. OPALMON [Concomitant]
     Dosage: 15MCG THREE TIMES PER DAY
     Route: 048
  11. DEPAS [Concomitant]
     Dosage: 1MG TWICE PER DAY
     Route: 048

REACTIONS (9)
  - Brain contusion [Recovering/Resolving]
  - Cerebral haemorrhage [Recovered/Resolved]
  - Depressed level of consciousness [Recovered/Resolved]
  - Renal impairment [Unknown]
  - Fall [Recovering/Resolving]
  - Dizziness [Recovered/Resolved]
  - Feeling abnormal [Unknown]
  - Speech disorder [Unknown]
  - Nervous system disorder [Unknown]
